FAERS Safety Report 17821191 (Version 1)
Quarter: 2020Q2

REPORT INFORMATION
  Report Type: Spontaneous
  Country: CA (occurrence: CA)
  Receive Date: 20200525
  Receipt Date: 20200525
  Transmission Date: 20200714
  Serious: Yes (Hospitalization, Disabling)
  Sender: FDA-Public Use
  Company Number: CA-SA-2020SA129952

PATIENT
  Age: 55 Year
  Sex: Female
  Weight: 51 kg

DRUGS (2)
  1. TAXOTERE [Suspect]
     Active Substance: DOCETAXEL
     Indication: BREAST CANCER
  2. TAXOTERE [Suspect]
     Active Substance: DOCETAXEL
     Indication: CHEMOTHERAPY
     Dosage: 108 MG, Q3W
     Route: 042

REACTIONS (2)
  - Myositis [Recovering/Resolving]
  - Blood creatine phosphokinase increased [Recovering/Resolving]
